FAERS Safety Report 6735318-0 (Version None)
Quarter: 2010Q2

REPORT INFORMATION
  Report Type: 
  Country: None (occurrence: None)
  Receive Date: 20100521
  Receipt Date: 20100510
  Transmission Date: 20101027
  Serious: Yes (Other)
  Sender: FDA-Public Use
  Company Number: FR-TEVA-234338ISR

PATIENT
  Sex: Female

DRUGS (5)
  1. AZILECT [Suspect]
     Indication: PARKINSON'S DISEASE
     Route: 048
  2. PIRIBEDIL [Concomitant]
     Route: 048
  3. BROMAZEPAM [Concomitant]
     Route: 048
  4. BEROCCA C [Concomitant]
     Route: 048
  5. TOCOPHERYL ACETATE [Concomitant]
     Route: 048

REACTIONS (1)
  - POLYDIPSIA [None]
